FAERS Safety Report 7684209-X (Version None)
Quarter: 2011Q3

REPORT INFORMATION
  Report Type: 
  Country: None (occurrence: None)
  Receive Date: 20110815
  Receipt Date: 20110803
  Transmission Date: 20111222
  Serious: Yes (Hospitalization, Other)
  Sender: FDA-Public Use
  Company Number: JP-BAYER-2011-072396

PATIENT
  Age: 74 Year
  Sex: Male

DRUGS (13)
  1. DETANTOL R [Suspect]
     Dosage: DAILY DOSE 6 MG
  2. ATENOLOL [Suspect]
     Dosage: DAILY DOSE 50 MG
  3. KETOPROFEN [Suspect]
  4. TENORMIN [Suspect]
     Dosage: DAILY DOSE 50 MG
  5. SELBEX [Suspect]
     Dosage: DAILY DOSE 50 MG
  6. ALINAMIN F [FURSULTIAMINE HYDROCHLORIDE] [Suspect]
     Dosage: DAILY DOSE 75 MG
  7. RESTAMIN CORTISONE [Suspect]
  8. ADALAT [Suspect]
     Dosage: DAILY DOSE 40 MG
  9. MOBIC [Suspect]
     Dosage: DAILY DOSE 10 MG
     Route: 048
     Dates: start: 20110601
  10. MOBIC [Suspect]
     Dosage: UNK
     Dates: start: 20110728
  11. NIFEDIPINE [Suspect]
     Dosage: DAILY DOSE 40 MG
  12. SEFTAC [Suspect]
     Dosage: DAILY DOSE 50 MG
  13. MICARDIS [Suspect]
     Dosage: DAILY DOSE 80 MG

REACTIONS (4)
  - BLISTER [None]
  - OROPHARYNGEAL DISCOMFORT [None]
  - DRUG ERUPTION [None]
  - LIVER FUNCTION TEST ABNORMAL [None]
